FAERS Safety Report 24742664 (Version 1)
Quarter: 2024Q4

REPORT INFORMATION
  Report Type: Spontaneous
  Country: US (occurrence: None)
  Receive Date: 20241214
  Receipt Date: 20241214
  Transmission Date: 20250114
  Serious: Yes (Death, Life-Threatening, Hospitalization)
  Sender: Public
  Company Number: None

PATIENT
  Age: 38 Year
  Sex: Female

DRUGS (10)
  1. PREDNISONE [Suspect]
     Active Substance: PREDNISONE
     Indication: Hepatic steatosis
     Dosage: DAILY ORAL?
     Route: 048
     Dates: start: 20240912, end: 20241011
  2. NYSTATIN [Suspect]
     Active Substance: NYSTATIN
     Indication: Oral candidiasis
     Dosage: SWISH IN MOUTH AS NEEDED
     Route: 050
     Dates: start: 20240923, end: 20241011
  3. Prednisone Inhaler Allergy [Concomitant]
  4. NYSTATIN [Concomitant]
     Active Substance: NYSTATIN
  5. DIETARY SUPPLEMENT\HERBALS\MILK THISTLE [Concomitant]
     Active Substance: MILK THISTLE
  6. CALCIUM [Concomitant]
     Active Substance: CALCIUM
  7. VITAMINS [Concomitant]
     Active Substance: VITAMINS
  8. MAGNESIUM [Concomitant]
     Active Substance: MAGNESIUM
  9. B12 [Concomitant]
  10. HERBALS\TURMERIC [Concomitant]
     Active Substance: HERBALS\TURMERIC

REACTIONS (7)
  - Drug ineffective [None]
  - Pneumonia [None]
  - Dysstasia [None]
  - Stevens-Johnson syndrome [None]
  - Sepsis [None]
  - Skin discolouration [None]
  - Dyspnoea [None]

NARRATIVE: CASE EVENT DATE: 20241009
